FAERS Safety Report 6760435-9 (Version None)
Quarter: 2010Q2

REPORT INFORMATION
  Report Type: 
  Country: None (occurrence: None)
  Receive Date: 20100608
  Receipt Date: 20100602
  Transmission Date: 20101027
  Serious: Yes (Hospitalization)
  Sender: FDA-Public Use
  Company Number: US-RB-006844-10

PATIENT
  Age: 55 Year
  Sex: Female

DRUGS (1)
  1. SUBOXONE [Suspect]
     Indication: PAIN
     Dosage: DOSE VARIES BETWEEN 8-16 MG DAILY
     Route: 060
     Dates: start: 20100101

REACTIONS (8)
  - CELLULITIS [None]
  - DEPRESSION [None]
  - DIABETES MELLITUS [None]
  - ERYTHEMA [None]
  - NERVE INJURY [None]
  - OEDEMA PERIPHERAL [None]
  - OPEN WOUND [None]
  - PAIN IN EXTREMITY [None]
